FAERS Safety Report 5849911-0 (Version None)
Quarter: 2008Q3

REPORT INFORMATION
  Report Type: 
  Country: None (occurrence: None)
  Receive Date: 20080819
  Receipt Date: 20080811
  Transmission Date: 20090109
  Serious: Yes (Other)
  Sender: FDA-Public Use
  Company Number: BE-AMGEN-UK280309

PATIENT
  Sex: Female
  Weight: 77 kg

DRUGS (4)
  1. ARANESP [Suspect]
     Indication: RENAL FAILURE CHRONIC
     Route: 058
     Dates: start: 20080101
  2. LIPITOR [Concomitant]
  3. AMLOR [Concomitant]
  4. VALTRAN [Concomitant]

REACTIONS (1)
  - ALOPECIA [None]
